FAERS Safety Report 21074150 (Version 8)
Quarter: 2022Q4

REPORT INFORMATION
  Report Type: Report from Study
  Country: NL (occurrence: NL)
  Receive Date: 20220713
  Receipt Date: 20221229
  Transmission Date: 20230112
  Serious: Yes (Death, Hospitalization)
  Sender: FDA-Public Use
  Company Number: NL-GILEAD-2022-0588424

PATIENT
  Age: 73 Year
  Sex: Male
  Weight: 70 kg

DRUGS (23)
  1. BREXUCABTAGENE AUTOLEUCEL [Suspect]
     Active Substance: BREXUCABTAGENE AUTOLEUCEL
     Indication: Mantle cell lymphoma
     Dosage: 68 (NO UNITS PROVIDED)
     Route: 042
     Dates: start: 20220504, end: 20220504
  2. CYCLOPHOSPHAMIDE [Suspect]
     Active Substance: CYCLOPHOSPHAMIDE
     Indication: Bone marrow conditioning regimen
     Dosage: 1000 (NO UNITS PROVIDED)
     Route: 042
     Dates: start: 20220429, end: 20220501
  3. FLUDARABINE [Suspect]
     Active Substance: FLUDARABINE PHOSPHATE
     Indication: Bone marrow conditioning regimen
     Dosage: 60 (NO UNITS PROVIDED)
     Route: 042
     Dates: start: 20220429, end: 20220501
  4. DEXAMETHASONE [Suspect]
     Active Substance: DEXAMETHASONE
     Indication: Mantle cell lymphoma
     Dosage: 40
     Route: 065
     Dates: start: 20220405, end: 20220408
  5. MOVICOLON [Concomitant]
     Active Substance: POLYETHYLENE GLYCOL 3350\POTASSIUM CHLORIDE\SODIUM BICARBONATE\SODIUM CHLORIDE
     Dosage: UNKNOWN,OTHER,TWICE DAILY
     Route: 048
     Dates: start: 20220330, end: 20220810
  6. NICOTINE [Concomitant]
     Active Substance: NICOTINE
     Dosage: 7,OTHER,CONTINUOUS
     Route: 062
     Dates: start: 20220428, end: 20220607
  7. NADROPARIN [Concomitant]
     Active Substance: NADROPARIN
     Dosage: 2850,OTHER,DAILY
     Route: 058
     Dates: start: 20220429, end: 20220607
  8. METOPROLOL [Concomitant]
     Active Substance: METOPROLOL
     Dosage: 50,MG,TWICE DAILY
     Route: 048
     Dates: start: 20220511
  9. METOPROLOL [Concomitant]
     Active Substance: METOPROLOL
     Dosage: 50,MG,TWICE DAILY
     Route: 048
     Dates: start: 20220511, end: 20220810
  10. METOPROLOL [Concomitant]
     Active Substance: METOPROLOL
     Dosage: 12.5,MG,TWICE DAILY
     Route: 048
     Dates: start: 20220523, end: 20220603
  11. SULFAMETHOXAZOLE\TRIMETHOPRIM [Concomitant]
     Active Substance: SULFAMETHOXAZOLE\TRIMETHOPRIM
     Dosage: 480,MG,DAILY
     Route: 042
     Dates: start: 20220516
  12. PANTOPRAZOLE [Concomitant]
     Active Substance: PANTOPRAZOLE
     Dosage: 40,MG,DAILY
     Route: 048
     Dates: start: 20220519
  13. LEVETIRACETAM [Concomitant]
     Active Substance: LEVETIRACETAM
     Dosage: 750,MG,TWICE DAILY
     Route: 048
     Dates: start: 20220523, end: 20220810
  14. MAGNESIUM SULFAS [Concomitant]
     Dosage: 1000,MG,DAILY
     Route: 042
     Dates: start: 20220530, end: 20220601
  15. MAGNESIUM SULFAS [Concomitant]
     Dosage: 2000,MG,DAILY
     Route: 042
     Dates: start: 20220601, end: 20220602
  16. HALDOL DECANOATE [Concomitant]
     Active Substance: HALOPERIDOL DECANOATE
     Dosage: 1,MG,DAILY
     Route: 048
     Dates: start: 20220530, end: 20220707
  17. CHOLECALCIFEROL [Concomitant]
     Active Substance: CHOLECALCIFEROL
     Dosage: 50000,OTHER,OTHER
     Route: 048
     Dates: start: 20220603
  18. CHOLECALCIFEROL [Concomitant]
     Active Substance: CHOLECALCIFEROL
     Dosage: 50000,OTHER,OTHER
     Route: 048
     Dates: start: 20220603, end: 20220810
  19. POTASSIUM CHLORIDE [Concomitant]
     Active Substance: POTASSIUM CHLORIDE
     Dosage: 1200,MG,THREE TIMES DAILY
     Route: 048
     Dates: start: 20220603, end: 20220607
  20. HEPARIN SODIUM [Concomitant]
     Active Substance: HEPARIN SODIUM
     Dosage: 2,ML,DAILY
     Route: 042
     Dates: start: 20220330, end: 20220529
  21. HEPARIN SODIUM [Concomitant]
     Active Substance: HEPARIN SODIUM
     Dosage: 0.5,MG,OTHER
     Route: 048
     Dates: start: 20220704, end: 20220810
  22. INSULIN ASPART [Concomitant]
     Active Substance: INSULIN ASPART
     Dosage: 100,OTHER,OTHER
     Route: 058
     Dates: start: 20220516, end: 20220529
  23. CALCIUM GLUCONATE [Concomitant]
     Active Substance: CALCIUM GLUCONATE
     Dosage: 1000,MG,DAILY
     Route: 042
     Dates: start: 20220530, end: 20220531

REACTIONS (2)
  - Immune effector cell-associated neurotoxicity syndrome [Fatal]
  - Hip fracture [Recovered/Resolved]

NARRATIVE: CASE EVENT DATE: 20220101
